FAERS Safety Report 10006450 (Version 1)
Quarter: 2014Q1

REPORT INFORMATION
  Report Type: Spontaneous
  Country: US (occurrence: None)
  Receive Date: 20140312
  Receipt Date: 20140312
  Transmission Date: 20141002
  Serious: Yes (Other)
  Sender: FDA-Public Use
  Company Number: None

PATIENT
  Age: 46 Year
  Sex: Female
  Weight: 62.14 kg

DRUGS (1)
  1. MIRVASO [Suspect]
     Indication: ROSACEA
     Dosage: ONE DAILY APPLIED TO A SUFRACE, USUALLY THE SKIN
     Route: 061
     Dates: start: 20140131, end: 20140223

REACTIONS (3)
  - Flushing [None]
  - Skin warm [None]
  - Discomfort [None]
